FAERS Safety Report 4578518-0 (Version None)
Quarter: 2005Q1

REPORT INFORMATION
  Report Type: 
  Country: None (occurrence: None)
  Receive Date: 20050209
  Receipt Date: 20050128
  Transmission Date: 20050727
  Serious: Yes (Hospitalization)
  Sender: FDA-Public Use
  Company Number: 2005-00170

PATIENT
  Age: 66 Year
  Sex: Male

DRUGS (1)
  1. VELCADE [Suspect]
     Indication: MULTIPLE MYELOMA
     Dosage: 3.50 MG
     Dates: start: 20040901

REACTIONS (4)
  - ASTHENIA [None]
  - FATIGUE [None]
  - LEUKAEMIA [None]
  - MYELOMA RECURRENCE [None]
